FAERS Safety Report 16904160 (Version 1)
Quarter: 2019Q4

REPORT INFORMATION
  Report Type: Spontaneous
  Country: US (occurrence: US)
  Receive Date: 20191009
  Receipt Date: 20191009
  Transmission Date: 20200122
  Serious: Yes (Other)
  Sender: FDA-Public Use
  Company Number: None

PATIENT
  Age: 55 Year
  Sex: Female

DRUGS (15)
  1. LEVOTHYROXIN [Concomitant]
     Active Substance: LEVOTHYROXINE
  2. CYCLOBENZAPR [Concomitant]
     Active Substance: CYCLOBENZAPRINE
  3. TOUJEO [Concomitant]
     Active Substance: INSULIN GLARGINE
  4. JARDIANCE [Concomitant]
     Active Substance: EMPAGLIFLOZIN
  5. TALTZ [Suspect]
     Active Substance: IXEKIZUMAB
     Indication: PSORIASIS
     Dosage: ?          OTHER FREQUENCY:EVERY 4 WEEKS;?
     Route: 058
     Dates: start: 20180827
  6. METHYLPRED [Concomitant]
     Active Substance: METHYLPREDNISOLONE
  7. LISINOPRIL. [Concomitant]
     Active Substance: LISINOPRIL
  8. CYCLOBENZAPR [Concomitant]
     Active Substance: CYCLOBENZAPRINE
  9. VASCEPA [Concomitant]
     Active Substance: ICOSAPENT ETHYL
  10. FENOFIBRATE. [Concomitant]
     Active Substance: FENOFIBRATE
  11. ATORVASTATIN [Concomitant]
     Active Substance: ATORVASTATIN
  12. OXYCODONE [Concomitant]
     Active Substance: OXYCODONE
  13. ONDANSETRON [Concomitant]
     Active Substance: ONDANSETRON
  14. TRAMADOL. [Concomitant]
     Active Substance: TRAMADOL
  15. TRAMADOL. [Concomitant]
     Active Substance: TRAMADOL

REACTIONS (1)
  - Spinal operation [None]

NARRATIVE: CASE EVENT DATE: 20190918
